FAERS Safety Report 23686794 (Version 3)
Quarter: 2024Q2

REPORT INFORMATION
  Report Type: Spontaneous
  Country: US (occurrence: US)
  Receive Date: 20240329
  Receipt Date: 20240523
  Transmission Date: 20240716
  Serious: No
  Sender: FDA-Public Use
  Company Number: US-PFIZER INC-202400068244

PATIENT
  Age: 73 Year
  Sex: Male
  Weight: 65.77 kg

DRUGS (1)
  1. GENOTROPIN [Suspect]
     Active Substance: SOMATROPIN
     Dosage: 0.2, ONCE A DAY
     Dates: start: 20240319

REACTIONS (1)
  - Injection site pain [Unknown]
